FAERS Safety Report 24464816 (Version 1)
Quarter: 2024Q4

REPORT INFORMATION
  Report Type: Report from Study
  Country: US (occurrence: US)
  Receive Date: 20241018
  Receipt Date: 20241018
  Transmission Date: 20250114
  Serious: No
  Sender: ROCHE
  Company Number: US-ROCHE-3504044

PATIENT
  Age: 69 Year
  Sex: Female

DRUGS (8)
  1. XOLAIR [Suspect]
     Active Substance: OMALIZUMAB
     Indication: Idiopathic urticaria
     Dosage: LAST INJECTION DATE 19/JAN/2024
     Route: 058
     Dates: start: 20220420
  2. XOLAIR [Suspect]
     Active Substance: OMALIZUMAB
  3. ALEVE [Concomitant]
     Active Substance: NAPROXEN SODIUM
  4. CLOBETASOL [Concomitant]
     Active Substance: CLOBETASOL
  5. EPIPEN [Concomitant]
     Active Substance: EPINEPHRINE
  6. GABAPENTIN [Concomitant]
     Active Substance: GABAPENTIN
  7. METOPROLOL TARTRATE [Concomitant]
     Active Substance: METOPROLOL TARTRATE
  8. TRIAMCINOLONE ACETONIDE [Concomitant]
     Active Substance: TRIAMCINOLONE ACETONIDE

REACTIONS (2)
  - Lymphocytic infiltration [Unknown]
  - Lichen planus [Unknown]
